FAERS Safety Report 5652696-4 (Version None)
Quarter: 2008Q1

REPORT INFORMATION
  Report Type: 
  Country: None (occurrence: None)
  Receive Date: 20080305
  Receipt Date: 20080305
  Transmission Date: 20080703
  Serious: Yes (Death)
  Sender: FDA-Public Use
  Company Number: None

PATIENT
  Sex: Male
  Weight: 44.9061 kg

DRUGS (16)
  1. ZELNORM [Suspect]
     Indication: GASTROINTESTINAL MOTILITY DISORDER
     Dosage: 6 MG BID G-TUBE
     Dates: start: 20070501, end: 20080201
  2. ZELNORM [Suspect]
     Indication: MITOCHONDRIAL MYOPATHY
     Dosage: 6 MG BID G-TUBE
     Dates: start: 20070501, end: 20080201
  3. LEVETRIRACETAM [Concomitant]
  4. LORAZEPAM [Concomitant]
  5. TIAGABINE HCL [Concomitant]
  6. PHENYTOIN [Concomitant]
  7. MEMANTINE HCL [Concomitant]
  8. THIAMINE [Concomitant]
  9. DICHLORACITATE [Concomitant]
  10. LANSPRAZOLE [Concomitant]
  11. PEPTAMEN [Concomitant]
  12. COQ-10 [Concomitant]
  13. ALPHA-LIPOIC ACID [Concomitant]
  14. CREATININE [Concomitant]
  15. ALBUTEROL SULFATE [Concomitant]
  16. MULTI-DAY VITAMIN [Concomitant]

REACTIONS (11)
  - CONVULSION [None]
  - GENERAL PHYSICAL HEALTH DETERIORATION [None]
  - HYPOTENSION [None]
  - ILEUS PARALYTIC [None]
  - INFLUENZA [None]
  - MELAS SYNDROME [None]
  - OXYGEN SATURATION DECREASED [None]
  - PERITONITIS [None]
  - SEPSIS [None]
  - TACHYCARDIA [None]
  - VOMITING [None]
